FAERS Safety Report 6483398-2 (Version None)
Quarter: 2009Q4

REPORT INFORMATION
  Report Type: 
  Country: None (occurrence: None)
  Receive Date: 20091209
  Receipt Date: 20091201
  Transmission Date: 20100525
  Serious: Yes (Other)
  Sender: FDA-Public Use
  Company Number: US-BAYER-200917268BCC

PATIENT
  Age: 62 Year
  Sex: Female
  Weight: 66 kg

DRUGS (7)
  1. ALKA SELTZER PLUS EFFERVESCENT COLD ORANGE ZEST [Suspect]
     Indication: NASOPHARYNGITIS
     Dosage: TOTAL OF 6 DF
     Route: 048
     Dates: start: 20090101
  2. ALZA SELTZER LEMON-LIME [Suspect]
     Indication: NASOPHARYNGITIS
     Dosage: TOTAL OF 10 DF
     Route: 048
     Dates: start: 20090101, end: 20090101
  3. LEVOTHROID [Concomitant]
     Route: 065
  4. WELLBUTRIN [Concomitant]
     Route: 065
  5. CODEINE WITH TYLENOL [Concomitant]
     Route: 065
  6. RESTRIL [Concomitant]
     Route: 065
  7. EPO [Concomitant]
     Route: 065

REACTIONS (2)
  - ABDOMINAL PAIN UPPER [None]
  - GASTRIC ULCER [None]
